FAERS Safety Report 5829265-6 (Version None)
Quarter: 2008Q3

REPORT INFORMATION
  Report Type: 
  Country: None (occurrence: None)
  Receive Date: 20080731
  Receipt Date: 20080721
  Transmission Date: 20090109
  Serious: Yes (Other)
  Sender: FDA-Public Use
  Company Number: DE-ELI_LILLY_AND_COMPANY-DE200807001050

PATIENT
  Sex: Male
  Weight: 35 kg

DRUGS (5)
  1. STRATTERA [Suspect]
     Indication: ATTENTION DEFICIT/HYPERACTIVITY DISORDER
     Dosage: 18 MG, UNKNOWN
     Route: 065
     Dates: start: 20080527, end: 20080605
  2. STRATTERA [Suspect]
     Dosage: 40 MG, UNKNOWN
     Route: 065
     Dates: start: 20080606, end: 20080623
  3. TIAPRIDAL [Concomitant]
     Indication: TOURETTE'S DISORDER
     Dosage: 150 MG, EACH MORNING
     Dates: end: 20080526
  4. TIAPRIDAL [Concomitant]
     Dosage: 100 MG, EACH EVENING
     Dates: end: 20080526
  5. TIAPRIDAL [Concomitant]
     Dosage: 100 MG, EACH EVENING
     Dates: start: 20080527, end: 20080531

REACTIONS (3)
  - AGGRESSION [None]
  - HOMICIDAL IDEATION [None]
  - TIC [None]
